FAERS Safety Report 4852514-8 (Version None)
Quarter: 2005Q4

REPORT INFORMATION
  Report Type: 
  Country: None (occurrence: None)
  Receive Date: 20051213
  Receipt Date: 20051207
  Transmission Date: 20060501
  Serious: Yes (Hospitalization)
  Sender: FDA-Public Use
  Company Number: DE-AVENTIS-200512831DE

PATIENT
  Age: 57 Year
  Sex: Female

DRUGS (3)
  1. TAXOTERE [Suspect]
     Indication: BREAST CANCER
     Route: 042
     Dates: start: 20051102, end: 20051102
  2. ADRIAMYCIN [Suspect]
     Indication: BREAST CANCER
     Route: 042
     Dates: start: 20051102, end: 20051102
  3. CYCLOPHOSPHAMIDE [Suspect]
     Indication: BREAST CANCER
     Route: 042
     Dates: start: 20051102, end: 20051102

REACTIONS (2)
  - CARDIOVASCULAR DISORDER [None]
  - CATHETER RELATED INFECTION [None]
